FAERS Safety Report 10584647 (Version 1)
Quarter: 2014Q4

REPORT INFORMATION
  Report Type: Spontaneous
  Country: US (occurrence: US)
  Receive Date: 20141114
  Receipt Date: 20141114
  Transmission Date: 20150529
  Serious: No
  Sender: FDA-Public Use
  Company Number: US-BAYER-2014-168581

PATIENT
  Age: 43 Year
  Sex: Female
  Weight: 74 kg

DRUGS (2)
  1. ALEVE [Suspect]
     Active Substance: NAPROXEN SODIUM
     Dosage: UNK
     Route: 048
     Dates: start: 201411, end: 201411
  2. ALEVE [Suspect]
     Active Substance: NAPROXEN SODIUM
     Dosage: 6 DF WITHIN 24 HOURS
     Dates: start: 201411

REACTIONS (3)
  - Nausea [Not Recovered/Not Resolved]
  - Extra dose administered [None]
  - Abdominal discomfort [Not Recovered/Not Resolved]

NARRATIVE: CASE EVENT DATE: 201411
